FAERS Safety Report 8378322-1 (Version None)
Quarter: 2012Q2

REPORT INFORMATION
  Report Type: 
  Country: None (occurrence: None)
  Receive Date: 20120522
  Receipt Date: 20120516
  Transmission Date: 20120825
  Serious: Yes (Other)
  Sender: FDA-Public Use
  Company Number: PHHY2012CH041744

PATIENT
  Age: 70 Year
  Sex: Female

DRUGS (9)
  1. SIMVASTATIN [Concomitant]
     Dosage: 20 MG, DAILY
     Route: 048
  2. SINTROM [Concomitant]
     Dosage: AS NEEDED
     Route: 048
  3. ZOLPIDEM [Suspect]
     Dosage: 10 MG, DAILY
     Route: 048
  4. XANAX [Interacting]
     Dosage: 0.5MG IN THE MORNING AND 1 MG IN THE EVENING
     Route: 048
  5. IRBESARTAN [Concomitant]
     Dosage: 300 MG, DAILY
     Route: 048
  6. ANAFRANIL [Interacting]
     Dosage: 50 MG, BID
     Route: 048
     Dates: start: 20120304, end: 20120307
  7. ANAFRANIL [Interacting]
     Dosage: 75 MG, BID
     Route: 048
     Dates: start: 20120217, end: 20120303
  8. ANAFRANIL [Interacting]
     Dosage: 25 MG, BID
     Route: 048
     Dates: start: 20120130, end: 20120202
  9. ANAFRANIL [Interacting]
     Dosage: 50 MG, BID
     Route: 048
     Dates: start: 20120203, end: 20120216

REACTIONS (7)
  - VERTIGO [None]
  - DRUG INTERACTION [None]
  - RHABDOMYOLYSIS [None]
  - FALL [None]
  - DRUG LEVEL INCREASED [None]
  - INFLAMMATION [None]
  - MUSCULAR WEAKNESS [None]
